FAERS Safety Report 19209927 (Version 1)
Quarter: 2021Q2

REPORT INFORMATION
  Report Type: Spontaneous
  Country: US (occurrence: US)
  Receive Date: 20210504
  Receipt Date: 20210504
  Transmission Date: 20210717
  Serious: No
  Sender: FDA-Public Use
  Company Number: US-ELI_LILLY_AND_COMPANY-US202104013931

PATIENT
  Sex: Female

DRUGS (3)
  1. DULOXETINE HYDROCHLORIDE. [Suspect]
     Active Substance: DULOXETINE HYDROCHLORIDE
     Indication: FIBROMYALGIA
     Dosage: 30 MG, BID
     Route: 048
     Dates: start: 2019
  2. DULOXETINE HYDROCHLORIDE. [Suspect]
     Active Substance: DULOXETINE HYDROCHLORIDE
     Dosage: 60 MG, BID
     Route: 048
  3. DULOXETINE HYDROCHLORIDE. [Suspect]
     Active Substance: DULOXETINE HYDROCHLORIDE
     Dosage: 90 MG, BID
     Route: 048

REACTIONS (6)
  - Tinnitus [Not Recovered/Not Resolved]
  - Ear pain [Not Recovered/Not Resolved]
  - Neck pain [Not Recovered/Not Resolved]
  - Withdrawal syndrome [Unknown]
  - Electric shock sensation [Not Recovered/Not Resolved]
  - Headache [Not Recovered/Not Resolved]
